FAERS Safety Report 4470848-6 (Version None)
Quarter: 2004Q4

REPORT INFORMATION
  Report Type: 
  Country: None (occurrence: None)
  Receive Date: 20041011
  Receipt Date: 20040929
  Transmission Date: 20050328
  Serious: Yes (Other)
  Sender: FDA-Public Use
  Company Number: PHBS2004JP13022

PATIENT
  Age: 54 Year
  Sex: Male

DRUGS (1)
  1. VOLTAREN [Suspect]
     Indication: GOUT
     Dosage: 25 MG, PRN
     Route: 048
     Dates: end: 20040901

REACTIONS (4)
  - DYSPNOEA [None]
  - EOSINOPHILIC PNEUMONIA [None]
  - HYPOXIA [None]
  - NASOPHARYNGITIS [None]
